FAERS Safety Report 11810447 (Version 1)
Quarter: 2015Q4

REPORT INFORMATION
  Report Type: Spontaneous
  Country: BR (occurrence: BR)
  Receive Date: 20151208
  Receipt Date: 20151208
  Transmission Date: 20160305
  Serious: Yes (Hospitalization, Other)
  Sender: FDA-Public Use
  Company Number: BR-ABBVIE-15P-020-1465897-00

PATIENT
  Sex: Male
  Weight: 58 kg

DRUGS (7)
  1. ATENSINA [Concomitant]
     Active Substance: CLONIDINE
     Indication: PRODUCT USED FOR UNKNOWN INDICATION
     Dosage: UNIT DOSE OF 0.25, AT NIGHT (FORM OF ADMINISTRATION NOT SPECIFIED)
     Dates: end: 201509
  2. DEPAKOTE ER [Suspect]
     Active Substance: DIVALPROEX SODIUM
     Indication: PRODUCT USED FOR UNKNOWN INDICATION
     Dosage: DAILY DOSE: 1000 MG (500 MG AT 6:30AM AND 8PM)
     Route: 048
  3. RIVOTRIL [Suspect]
     Active Substance: CLONAZEPAM
     Indication: PRODUCT USED FOR UNKNOWN INDICATION
     Dosage: DAILY DOSE: 6 DROP (2 DROPS IN THE MORNING, 4 DROPS AT NIGHT)
     Route: 065
     Dates: end: 201506
  4. RIVOTRIL [Suspect]
     Active Substance: CLONAZEPAM
     Dosage: 16 DROP: UNIT DOSE: 4 DROPS IN THE MORNING, 4 DROPS 4PM AND 8 DROPS 8 PM
     Route: 065
     Dates: start: 201506
  5. LAMICTAL [Concomitant]
     Active Substance: LAMOTRIGINE
     Indication: PRODUCT USED FOR UNKNOWN INDICATION
     Dosage: DAILY DOSE: 200 MG (100 MG IN THE MORNING AND AT NIGHT)
  6. ENDOFOLIN [Concomitant]
     Active Substance: FOLIC ACID
     Indication: PRODUCT USED FOR UNKNOWN INDICATION
     Dosage: DAILY DOSE: 10 MG (5 MG IN THE MORNING AND AT NIGHT)
  7. ATENSINA [Concomitant]
     Active Substance: CLONIDINE
     Dosage: UNIT DOSE INCREASED TO 0.25 IN THE MORNING (FORM OF ADMINISTRATION NOT SPECIFIED)
     Dates: start: 201509

REACTIONS (7)
  - Off label use [Unknown]
  - Seizure [Not Recovered/Not Resolved]
  - Drug administered to patient of inappropriate age [Unknown]
  - Petit mal epilepsy [Not Recovered/Not Resolved]
  - Feeling abnormal [Not Recovered/Not Resolved]
  - Ammonia increased [Unknown]
  - Colitis [Unknown]

NARRATIVE: CASE EVENT DATE: 2010
